FAERS Safety Report 20155980 (Version 3)
Quarter: 2022Q2

REPORT INFORMATION
  Report Type: Other
  Country: IT (occurrence: IT)
  Receive Date: 20211207
  Receipt Date: 20220531
  Transmission Date: 20220721
  Serious: Yes (Death, Hospitalization)
  Sender: FDA-Public Use
  Company Number: IT-002147023-NVSC2021IT218980

PATIENT
  Age: 78 Year
  Sex: Male

DRUGS (20)
  1. RITUXIMAB [Suspect]
     Active Substance: RITUXIMAB
     Indication: Diffuse large B-cell lymphoma refractory
     Dosage: 742.5 MG
     Route: 041
     Dates: start: 20211026
  2. RITUXIMAB [Suspect]
     Active Substance: RITUXIMAB
     Dosage: 742.5 MG (500 MG)
     Route: 042
     Dates: start: 20210901, end: 20211026
  3. RITUXIMAB [Suspect]
     Active Substance: RITUXIMAB
     Dosage: 742.5 MG (100 MG)
     Route: 042
     Dates: start: 20210901, end: 20211026
  4. COPANLISIB [Suspect]
     Active Substance: COPANLISIB
     Indication: Diffuse large B-cell lymphoma refractory
     Dosage: 90 MG
     Route: 042
     Dates: start: 20210901, end: 20211102
  5. COPANLISIB [Suspect]
     Active Substance: COPANLISIB
     Dosage: 45 MG
     Route: 042
     Dates: start: 20211026
  6. COPANLISIB [Suspect]
     Active Substance: COPANLISIB
     Dosage: 60 MG
     Route: 042
     Dates: start: 20210901, end: 20210908
  7. BENDAMUSTINE [Suspect]
     Active Substance: BENDAMUSTINE
     Indication: Diffuse large B-cell lymphoma refractory
     Dosage: 25 MG
     Route: 042
     Dates: start: 20210901, end: 20211027
  8. BENDAMUSTINE [Suspect]
     Active Substance: BENDAMUSTINE
     Dosage: 100 MG
     Route: 042
     Dates: start: 20210901, end: 20211027
  9. BENDAMUSTINE [Suspect]
     Active Substance: BENDAMUSTINE
     Dosage: 138.6 MG
     Route: 042
     Dates: start: 20210901, end: 20210902
  10. BENDAMUSTINE [Suspect]
     Active Substance: BENDAMUSTINE
     Dosage: 118 MG (100MG)
     Route: 042
     Dates: start: 20211026
  11. ALPRAZOLAM [Concomitant]
     Active Substance: ALPRAZOLAM
     Indication: Product used for unknown indication
     Dosage: 0.25 MG
     Route: 065
  12. SILODOSIN [Concomitant]
     Active Substance: SILODOSIN
     Indication: Product used for unknown indication
     Dosage: UNK
     Route: 065
  13. FLECAINIDE [Concomitant]
     Active Substance: FLECAINIDE
     Indication: Product used for unknown indication
     Dosage: 100 MG, BID
     Route: 065
     Dates: start: 20210901
  14. FOLIN [FOLIC ACID] [Concomitant]
     Indication: Product used for unknown indication
     Dosage: UNK
     Route: 065
  15. ALLOPURINOL [Concomitant]
     Active Substance: ALLOPURINOL
     Indication: Product used for unknown indication
     Dosage: UNK
     Route: 065
  16. ISAVUCONAZOLE [Concomitant]
     Active Substance: ISAVUCONAZOLE
     Indication: Product used for unknown indication
     Dosage: 100 MG, BID
     Route: 065
  17. LAMIVUDINE [Concomitant]
     Active Substance: LAMIVUDINE
     Indication: Product used for unknown indication
     Dosage: UNK
     Route: 065
  18. VALGANCICLOVIR [Concomitant]
     Active Substance: VALGANCICLOVIR
     Indication: Product used for unknown indication
     Dosage: 450 MG, BID
     Route: 065
  19. URSODIOL [Concomitant]
     Active Substance: URSODIOL
     Indication: Product used for unknown indication
     Dosage: UNK
     Route: 065
  20. OMEPRAZOLE [Concomitant]
     Active Substance: OMEPRAZOLE
     Indication: Product used for unknown indication
     Dosage: UNK
     Route: 065

REACTIONS (2)
  - Septic shock [Fatal]
  - Pyrexia [Recovered/Resolved]

NARRATIVE: CASE EVENT DATE: 20211106
